FAERS Safety Report 4560174-9 (Version None)
Quarter: 2005Q1

REPORT INFORMATION
  Report Type: 
  Country: None (occurrence: None)
  Receive Date: 20050125
  Receipt Date: 20041125
  Transmission Date: 20050727
  Serious: Yes (Death, Life-Threatening, Hospitalization, Other)
  Sender: FDA-Public Use
  Company Number: 200413514EU

PATIENT
  Age: 52 Year
  Sex: Male

DRUGS (3)
  1. TAXOTERE [Suspect]
     Indication: PROSTATE CANCER
     Route: 042
     Dates: start: 20041118
  2. KYTRIL [Concomitant]
     Indication: NAUSEA
     Route: 048
     Dates: start: 20041118, end: 20041121
  3. ZOMETA [Concomitant]
     Indication: METASTASES TO BONE
     Route: 042
     Dates: start: 20040624, end: 20041118

REACTIONS (5)
  - ACIDOSIS [None]
  - CARDIAC ARREST [None]
  - COLITIS ISCHAEMIC [None]
  - DISSEMINATED INTRAVASCULAR COAGULATION [None]
  - INTESTINAL INFARCTION [None]
